FAERS Safety Report 8073220-5 (Version None)
Quarter: 2012Q1

REPORT INFORMATION
  Report Type: 
  Country: None (occurrence: None)
  Receive Date: 20120126
  Receipt Date: 20120117
  Transmission Date: 20120608
  Serious: Yes (Hospitalization, Other)
  Sender: FDA-Public Use
  Company Number: PHEH2011US009115

PATIENT
  Sex: Female
  Weight: 106.58 kg

DRUGS (25)
  1. OMEPRAZOLE [Concomitant]
     Dosage: 20 MG, UNK
  2. CARBINOL [Concomitant]
     Dosage: 500 MG, UNK
  3. RECLAST [Suspect]
     Indication: OSTEOPOROSIS
     Dosage: 5 MG, UNK
     Route: 042
     Dates: start: 20100801
  4. METHOTREXATE [Concomitant]
     Dosage: 1 MILLIGRAMS W E E K L Y ,
  5. VICODIN [Concomitant]
     Indication: PAIN
     Dosage: 5/500 PRN
  6. LISINOPRIL [Concomitant]
     Dosage: 5 MG, UNK
  7. CALCIUM [Concomitant]
     Dosage: UNK UKN, UNK
  8. FUROSEMIDE [Concomitant]
     Dosage: 40 MG, UNK
  9. VENLAFAXINE [Concomitant]
     Dosage: 150 MG, UNK
  10. RECLAST [Suspect]
     Dosage: 5 MG, UNK
     Route: 042
     Dates: start: 20111027
  11. COREG [Concomitant]
     Dosage: 3.125 MG, UNK
  12. PRAVACHOL [Concomitant]
     Dosage: UNK UKN, UNK
  13. PREDNISONE TAB [Concomitant]
     Dosage: 5 MG, UNK
  14. FIORICET [Concomitant]
     Indication: HEADACHE
     Dosage: EVERY 8 HOURS AS NEEDED
  15. ACTONEL [Suspect]
     Dosage: 150 MG, UNK
     Dates: start: 20091201, end: 20110829
  16. GLUCOPHAGE [Concomitant]
     Dosage: 500 MILLIGRAMS AT NIGHT,
  17. CARBIMAZOLE [Concomitant]
     Dosage: 500 MG, UNK
  18. POTASSIUM CHLORIDE [Concomitant]
     Dosage: 10 MEQ A DAY,
  19. METFORMIN HCL [Concomitant]
     Dosage: 500 MG, UNK
  20. HYDROCODONE BITARTRATE AND ACETAMINOPHEN [Concomitant]
     Dosage: 1 DF, 5 / 5 0 0 ONE THREE TIMES A DAY PRN
  21. LASIX [Concomitant]
     Dosage: 40 MG, UNK
  22. MELOXICAM [Concomitant]
     Dosage: 50 MG, UNK
  23. FOLIC ACID [Concomitant]
     Dosage: UNK MG, BID
  24. PRAVASTATIN [Concomitant]
     Dosage: 80 M I L L I G R A M S AT B E D T I M E ,
  25. VITAMIN D [Concomitant]
     Dosage: 2000 U, UNK

REACTIONS (27)
  - MUSCULOSKELETAL CHEST PAIN [None]
  - PANCREATITIS [None]
  - SCAR [None]
  - RED BLOOD CELL COUNT DECREASED [None]
  - LYMPHOCYTE COUNT DECREASED [None]
  - PAINFUL RESPIRATION [None]
  - ATELECTASIS [None]
  - AORTIC CALCIFICATION [None]
  - FIBRIN D DIMER INCREASED [None]
  - MUSCULOSKELETAL PAIN [None]
  - MONOCYTE COUNT INCREASED [None]
  - ABDOMINAL PAIN [None]
  - GRANULOCYTE COUNT INCREASED [None]
  - BONE PAIN [None]
  - DYSPNOEA [None]
  - CARDIOMEGALY [None]
  - AORTIC DISORDER [None]
  - ABDOMINAL DISCOMFORT [None]
  - GASTROOESOPHAGEAL REFLUX DISEASE [None]
  - CHEST PAIN [None]
  - DIVERTICULUM INTESTINAL [None]
  - ERUCTATION [None]
  - PERICARDIAL EFFUSION [None]
  - HEPATIC STEATOSIS [None]
  - MYELOPATHY [None]
  - CHRONIC OBSTRUCTIVE PULMONARY DISEASE [None]
  - WHITE BLOOD CELL COUNT INCREASED [None]
